FAERS Safety Report 20200145 (Version 1)
Quarter: 2021Q4

REPORT INFORMATION
  Report Type: Spontaneous
  Country: DE (occurrence: DE)
  Receive Date: 20211217
  Receipt Date: 20211217
  Transmission Date: 20220303
  Serious: Yes (Hospitalization, Other)
  Sender: FDA-Public Use
  Company Number: DE-DCGMA-21190438

PATIENT
  Age: 46 Year
  Sex: Female
  Weight: 70 kg

DRUGS (1)
  1. DOXYCYCLINE [Suspect]
     Active Substance: DOXYCYCLINE
     Indication: Infection
     Dosage: 100MILLIGRAM
     Route: 048

REACTIONS (6)
  - Skin burning sensation [Unknown]
  - Blister [Unknown]
  - Stevens-Johnson syndrome [Unknown]
  - Rash [Unknown]
  - Somnolence [Unknown]
  - Erythema [Unknown]

NARRATIVE: CASE EVENT DATE: 20210510
